FAERS Safety Report 20640546 (Version 1)
Quarter: 2022Q1

REPORT INFORMATION
  Report Type: Spontaneous
  Country: US (occurrence: US)
  Receive Date: 20220327
  Receipt Date: 20220327
  Transmission Date: 20220423
  Serious: No
  Sender: FDA-Public Use
  Company Number: US-SANOFI-01023833

PATIENT
  Age: 86 Year
  Sex: Female

DRUGS (1)
  1. TOUJEO [Suspect]
     Active Substance: INSULIN GLARGINE
     Indication: Diabetes mellitus
     Dosage: DRUG STRUCTURE DOSAGE : 15-16 UNITS DRUG INTERVAL DOSAGE : ONCE A DAY DRUG TREATMENT DURATION:4-5 YE

REACTIONS (1)
  - Mobility decreased [Unknown]
